FAERS Safety Report 20662674 (Version 2)
Quarter: 2022Q2

REPORT INFORMATION
  Report Type: Spontaneous
  Country: US (occurrence: None)
  Receive Date: 20220401
  Receipt Date: 20220413
  Transmission Date: 20220721
  Serious: Yes (Other)
  Sender: FDA-Public Use
  Company Number: US-MLMSERVICE-20220318-3355874-2

PATIENT
  Age: 32 Year
  Sex: Female

DRUGS (30)
  1. CROMOLYN SODIUM [Suspect]
     Active Substance: CROMOLYN SODIUM
     Indication: Mast cell activation syndrome
     Route: 048
  2. MIDODRINE [Concomitant]
     Active Substance: MIDODRINE
     Indication: Postural orthostatic tachycardia syndrome
  3. MIDODRINE [Concomitant]
     Active Substance: MIDODRINE
     Indication: Mast cell activation syndrome
  4. NORTRIPTYLINE. [Concomitant]
     Indication: Mast cell activation syndrome
  5. NORTRIPTYLINE. [Concomitant]
     Indication: Sleep disorder
  6. NORTRIPTYLINE. [Concomitant]
     Indication: Diarrhoea
  7. NORTRIPTYLINE. [Concomitant]
     Indication: Abdominal pain
  8. ONDANSETRON [Concomitant]
     Active Substance: ONDANSETRON
     Indication: Mast cell activation syndrome
  9. ONDANSETRON [Concomitant]
     Active Substance: ONDANSETRON
     Indication: Nausea
  10. HYDROXYUREA [Concomitant]
     Active Substance: HYDROXYUREA
     Indication: Bone pain
  11. HYDROXYUREA [Concomitant]
     Active Substance: HYDROXYUREA
     Indication: Mast cell activation syndrome
  12. DIPHENHYDRAMINE [Concomitant]
     Active Substance: DIPHENHYDRAMINE
     Indication: Anaphylactic reaction
  13. DIPHENHYDRAMINE [Concomitant]
     Active Substance: DIPHENHYDRAMINE
     Indication: Mast cell activation syndrome
  14. NALTREXONE [Concomitant]
     Active Substance: NALTREXONE
     Indication: Bone pain
     Dosage: LOW-DOSE
  15. NALTREXONE [Concomitant]
     Active Substance: NALTREXONE
     Indication: Mast cell activation syndrome
  16. NALTREXONE [Concomitant]
     Active Substance: NALTREXONE
     Indication: Joint swelling
  17. NALTREXONE [Concomitant]
     Active Substance: NALTREXONE
     Indication: Arthralgia
  18. EPINEPHRINE [Concomitant]
     Active Substance: EPINEPHRINE
     Indication: Mast cell activation syndrome
  19. EPINEPHRINE [Concomitant]
     Active Substance: EPINEPHRINE
     Indication: Anaphylactic reaction
  20. PROPRANOLOL HYDROCHLORIDE [Concomitant]
     Active Substance: PROPRANOLOL HYDROCHLORIDE
     Indication: Mast cell activation syndrome
  21. PROPRANOLOL HYDROCHLORIDE [Concomitant]
     Active Substance: PROPRANOLOL HYDROCHLORIDE
     Indication: Postural orthostatic tachycardia syndrome
  22. GABAPENTIN. [Concomitant]
     Indication: Neuralgia
  23. GABAPENTIN. [Concomitant]
     Indication: Abdominal pain
  24. GABAPENTIN. [Concomitant]
     Indication: Mast cell activation syndrome
  25. ADALIMUMAB [Concomitant]
     Active Substance: ADALIMUMAB
     Indication: Psoriasis
  26. FAMOTIDINE [Concomitant]
     Active Substance: FAMOTIDINE
     Indication: Mast cell activation syndrome
  27. ALPRAZOLAM [Concomitant]
     Active Substance: ALPRAZOLAM
     Indication: Mast cell activation syndrome
  28. ALPRAZOLAM [Concomitant]
     Active Substance: ALPRAZOLAM
     Indication: Nausea
  29. ALPRAZOLAM [Concomitant]
     Active Substance: ALPRAZOLAM
     Indication: Pain
  30. CETIRIZINE [Concomitant]
     Active Substance: CETIRIZINE HYDROCHLORIDE
     Indication: Mast cell activation syndrome

REACTIONS (4)
  - Paresis [Unknown]
  - Drug intolerance [Unknown]
  - Mast cell activation syndrome [Unknown]
  - Condition aggravated [Unknown]
